FAERS Safety Report 15535342 (Version 1)
Quarter: 2018Q4

REPORT INFORMATION
  Report Type: Spontaneous
  Country: US (occurrence: US)
  Receive Date: 20181022
  Receipt Date: 20181022
  Transmission Date: 20190205
  Serious: Yes (Death, Hospitalization, Other)
  Sender: FDA-Public Use
  Company Number: US-CIPLA LTD.-2018US21905

PATIENT

DRUGS (22)
  1. ESLICARBAZEPINE [Suspect]
     Active Substance: ESLICARBAZEPINE
     Indication: PARTIAL SEIZURES
     Dosage: UNK
     Route: 065
  2. KETAMINE [Suspect]
     Active Substance: KETAMINE
     Dosage: UNK
     Route: 065
  3. LORAZEPAM. [Suspect]
     Active Substance: LORAZEPAM
     Indication: PARTIAL SEIZURES
     Dosage: UNK
     Route: 065
  4. CLOBAZAM. [Suspect]
     Active Substance: CLOBAZAM
     Indication: PARTIAL SEIZURES
     Dosage: UNK
     Route: 065
  5. PLACEBO [Suspect]
     Active Substance: UNSPECIFIED INGREDIENT
     Indication: STATUS EPILEPTICUS
     Dosage: UNK, DAILY
     Route: 065
  6. KETAMINE [Suspect]
     Active Substance: KETAMINE
     Indication: PARTIAL SEIZURES
     Dosage: 5 MG/KG, PER HOUR
  7. KETAMINE [Suspect]
     Active Substance: KETAMINE
     Dosage: 4 MG/KG, PER HOUR
  8. LEVETIRACETAM. [Suspect]
     Active Substance: LEVETIRACETAM
     Indication: PARTIAL SEIZURES
     Dosage: UNK
     Route: 065
  9. TIAGABINE [Suspect]
     Active Substance: TIAGABINE
     Indication: PARTIAL SEIZURES
     Dosage: UNK
     Route: 065
  10. MIDAZOLAM [Suspect]
     Active Substance: MIDAZOLAM HYDROCHLORIDE
     Dosage: 3.1 MG/KG, PER HOUR
  11. MIDAZOLAM [Suspect]
     Active Substance: MIDAZOLAM HYDROCHLORIDE
     Dosage: UNK
     Route: 065
  12. PROPOFOL. [Suspect]
     Active Substance: PROPOFOL
     Indication: PARTIAL SEIZURES
     Dosage: UNK, HIGH DOSE
     Route: 065
  13. CLONAZEPAM. [Suspect]
     Active Substance: CLONAZEPAM
     Indication: PARTIAL SEIZURES
     Dosage: UNK
     Route: 065
  14. PHENOBARBITAL. [Suspect]
     Active Substance: PHENOBARBITAL
     Indication: PARTIAL SEIZURES
     Dosage: UNK
     Route: 065
  15. KETAMINE [Suspect]
     Active Substance: KETAMINE
     Dosage: 7 MG/KG, PER HOUR
  16. MIDAZOLAM [Suspect]
     Active Substance: MIDAZOLAM HYDROCHLORIDE
     Dosage: 4 MG/KG, PER HOUR
  17. TOPIRAMATE. [Suspect]
     Active Substance: TOPIRAMATE
     Indication: PARTIAL SEIZURES
     Dosage: UNK
     Route: 065
  18. FELBAMATE. [Suspect]
     Active Substance: FELBAMATE
     Indication: PARTIAL SEIZURES
     Dosage: UNK
     Route: 065
  19. VIGABATRIN. [Suspect]
     Active Substance: VIGABATRIN
     Indication: PARTIAL SEIZURES
     Dosage: UNK
     Route: 065
  20. FENTANYL. [Suspect]
     Active Substance: FENTANYL
     Indication: PARTIAL SEIZURES
     Dosage: UNK, HIGH DOSE
     Route: 065
  21. MIDAZOLAM [Suspect]
     Active Substance: MIDAZOLAM HYDROCHLORIDE
     Indication: PARTIAL SEIZURES
     Dosage: 2.9 MG/KG, PER HOUR
  22. PHENYTOIN. [Suspect]
     Active Substance: PHENYTOIN
     Indication: PARTIAL SEIZURES
     Dosage: UNK
     Route: 065

REACTIONS (11)
  - Cardiac arrest [Fatal]
  - Epilepsy [Recovering/Resolving]
  - Blood creatinine increased [Unknown]
  - Hypotension [Unknown]
  - Bundle branch block right [Unknown]
  - Drug ineffective [Unknown]
  - Hyperchloraemia [Unknown]
  - Bradycardia [Unknown]
  - Blood lactic acid increased [Unknown]
  - Blood potassium increased [Unknown]
  - Metabolic acidosis [Unknown]
